FAERS Safety Report 14193395 (Version 1)
Quarter: 2017Q4

REPORT INFORMATION
  Report Type: Spontaneous
  Country: US (occurrence: US)
  Receive Date: 20171115
  Receipt Date: 20171115
  Transmission Date: 20180321
  Serious: No
  Sender: FDA-Public Use
  Company Number: US-BAUSCH-BL-2017-001525

PATIENT
  Age: 77 Year
  Sex: Female
  Weight: 75.36 kg

DRUGS (1)
  1. XENAZINE [Suspect]
     Active Substance: TETRABENAZINE
     Indication: TARDIVE DYSKINESIA
     Dosage: TWO TABLETS THREE TIMES DAILY
     Route: 048
     Dates: start: 201609

REACTIONS (4)
  - Dysphagia [Unknown]
  - Mastication disorder [Unknown]
  - Condition aggravated [Unknown]
  - Off label use [Unknown]

NARRATIVE: CASE EVENT DATE: 201609
